FAERS Safety Report 16091706 (Version 1)
Quarter: 2019Q1

REPORT INFORMATION
  Report Type: Spontaneous
  Country: AR (occurrence: AR)
  Receive Date: 20190319
  Receipt Date: 20190319
  Transmission Date: 20190418
  Serious: Yes (Other)
  Sender: FDA-Public Use
  Company Number: AR-009507513-1903ARG007260

PATIENT
  Age: 22 Year
  Sex: Female
  Weight: 54 kg

DRUGS (1)
  1. ALENDRONATE SODIUM. [Suspect]
     Active Substance: ALENDRONATE SODIUM
     Indication: FIBROUS DYSPLASIA OF BONE
     Dosage: 70 MILLIGRAM, QW
     Route: 042

REACTIONS (2)
  - Pathological fracture [Unknown]
  - Product use in unapproved indication [Unknown]
